FAERS Safety Report 6343575-8 (Version None)
Quarter: 2009Q3

REPORT INFORMATION
  Report Type: 
  Country: None (occurrence: None)
  Receive Date: 20090904
  Receipt Date: 20090904
  Transmission Date: 20100115
  Serious: No
  Sender: FDA-Public Use
  Company Number: None

PATIENT
  Age: 64 Year
  Sex: Female
  Weight: 71.6683 kg

DRUGS (1)
  1. ACTOS [Suspect]
     Indication: DIABETES MELLITUS
     Dosage: 15 MG ONCE IN A.M.
     Dates: start: 20090301

REACTIONS (3)
  - CARDIOVASCULAR DISORDER [None]
  - JOINT SWELLING [None]
  - WEIGHT INCREASED [None]
